FAERS Safety Report 5857531-7 (Version None)
Quarter: 2008Q3

REPORT INFORMATION
  Report Type: 
  Country: None (occurrence: None)
  Receive Date: 20080818
  Receipt Date: 20080715
  Transmission Date: 20090109
  Serious: No
  Sender: FDA-Public Use
  Company Number: TPA2008A00951

PATIENT
  Age: 83 Year
  Sex: Female
  Weight: 54.8852 kg

DRUGS (6)
  1. ROZEREM [Suspect]
     Indication: INSOMNIA
     Dosage: 8 MG, HS, PER ORAL
     Route: 048
     Dates: start: 20080219, end: 20080604
  2. ZYRTEC [Concomitant]
  3. PLAVIX [Concomitant]
  4. ASPIRIN [Concomitant]
  5. SULFMETHOXAZOLE (SULFAMETHOXAZOLE) [Concomitant]
  6. VESICARE [Concomitant]

REACTIONS (3)
  - ALOPECIA [None]
  - DRY SKIN [None]
  - POOR QUALITY SLEEP [None]
